FAERS Safety Report 4911732-0 (Version None)
Quarter: 2006Q1

REPORT INFORMATION
  Report Type: 
  Country: None (occurrence: None)
  Receive Date: 20060213
  Receipt Date: 20060131
  Transmission Date: 20060701
  Serious: Yes (Other)
  Sender: FDA-Public Use
  Company Number: B0409436A

PATIENT
  Age: 36 Year
  Sex: Male

DRUGS (4)
  1. ZIAGEN (FORMULATION UNKNOWN) (AVACAVIR SULPHATE) [Suspect]
     Indication: HIV INFECTION
     Dates: start: 20021101
  2. RETROVIR [Suspect]
     Indication: HIV INFECTION
     Dates: start: 20021101
  3. EPIVIR [Suspect]
     Indication: HIV INFECTION
     Dates: start: 20021101
  4. TENOFOVIR (TENOFOVIR) [Suspect]
     Indication: HIV INFECTION
     Dates: start: 20021101

REACTIONS (6)
  - BIOPSY MUCOSA ABNORMAL [None]
  - ENTERITIS [None]
  - IMMUNE RECONSTITUTION SYNDROME [None]
  - IMMUNOLOGY TEST ABNORMAL [None]
  - PROCTITIS [None]
  - SIGMOIDITIS [None]
